FAERS Safety Report 17825924 (Version 2)
Quarter: 2020Q2

REPORT INFORMATION
  Report Type: Spontaneous
  Country: FR (occurrence: FR)
  Receive Date: 20200526
  Receipt Date: 20200629
  Transmission Date: 20200714
  Serious: Yes (Death, Congenital Anomaly)
  Sender: FDA-Public Use
  Company Number: FR-009507513-2005FRA006705

PATIENT
  Sex: Female

DRUGS (1)
  1. NEXPLANON [Suspect]
     Active Substance: ETONOGESTREL
     Indication: CONTRACEPTION
     Dosage: NON APPLICABLE
     Route: 064
     Dates: end: 20200224

REACTIONS (2)
  - Abortion induced [Fatal]
  - Anencephaly [Fatal]

NARRATIVE: CASE EVENT DATE: 20200429
